FAERS Safety Report 17252635 (Version 1)
Quarter: 2020Q1

REPORT INFORMATION
  Report Type: Spontaneous
  Country: US (occurrence: US)
  Receive Date: 20200109
  Receipt Date: 20200109
  Transmission Date: 20200409
  Serious: No
  Sender: FDA-Public Use
  Company Number: US-OPTINOSE US, INC-2019OPT000976

PATIENT
  Age: 65 Year

DRUGS (1)
  1. XHANCE [Suspect]
     Active Substance: FLUTICASONE PROPIONATE
     Indication: PRODUCT USED FOR UNKNOWN INDICATION
     Route: 045
     Dates: start: 201906

REACTIONS (3)
  - Product dose omission [Unknown]
  - Device breakage [Unknown]
  - No adverse event [Unknown]

NARRATIVE: CASE EVENT DATE: 20191129
